FAERS Safety Report 7119434-X (Version None)
Quarter: 2010Q4

REPORT INFORMATION
  Report Type: 
  Country: None (occurrence: None)
  Receive Date: 20101123
  Receipt Date: 20101110
  Transmission Date: 20110411
  Serious: Yes (Death, Hospitalization)
  Sender: FDA-Public Use
  Company Number: US-ACTELION-A-US2010-41545

PATIENT

DRUGS (2)
  1. VENTAVIS [Suspect]
     Indication: PULMONARY ARTERIAL HYPERTENSION
     Dosage: 2.5 UG, UNK
     Route: 055
     Dates: start: 20090101
  2. VENTAVIS [Suspect]
     Dosage: 5 ?G, UNK
     Route: 055
     Dates: end: 20101101

REACTIONS (2)
  - HYPERTENSION [None]
  - SMALL INTESTINAL OBSTRUCTION [None]
